FAERS Safety Report 8966846 (Version 1)
Quarter: 2012Q4

REPORT INFORMATION
  Report Type: 
  Country: US (occurrence: US)
  Receive Date: 20121217
  Receipt Date: 20121217
  Transmission Date: 20130627
  Serious: Yes (Other)
  Sender: FDA-Public Use
  Company Number: US-PFIZER INC-2012316753

PATIENT
  Age: 67 Year
  Sex: Male

DRUGS (1)
  1. GEODON [Suspect]
     Dosage: UNK
     Dates: start: 2011

REACTIONS (1)
  - Parkinsonism [Unknown]
